FAERS Safety Report 25872954 (Version 1)
Quarter: 2025Q4

REPORT INFORMATION
  Report Type: Spontaneous
  Country: US (occurrence: US)
  Receive Date: 20251002
  Receipt Date: 20251002
  Transmission Date: 20260119
  Serious: Yes (Life-Threatening, Hospitalization, Other)
  Sender: PFIZER
  Company Number: US-PFIZER INC-PV202500116499

PATIENT
  Age: 5 Decade
  Sex: Female

DRUGS (3)
  1. BEVACIZUMAB [Suspect]
     Active Substance: BEVACIZUMAB
     Indication: PD-L1 positive cancer
     Dosage: TOTAL OF SIX TREATMENTS
  2. CARBOPLATIN [Suspect]
     Active Substance: CARBOPLATIN
     Indication: PD-L1 positive cancer
     Dosage: TOTAL OF SIX TREATMENTS
  3. PACLITAXEL [Suspect]
     Active Substance: PACLITAXEL
     Indication: PD-L1 positive cancer
     Dosage: TOTAL OF SIX TREATMENTS

REACTIONS (5)
  - Enterocutaneous fistula [Unknown]
  - Abscess limb [Unknown]
  - Female genital tract fistula [Unknown]
  - Urinary bladder abscess [Unknown]
  - Small intestinal obstruction [Unknown]
